FAERS Safety Report 23355283 (Version 4)
Quarter: 2025Q1

REPORT INFORMATION
  Report Type: Spontaneous
  Country: NL (occurrence: NL)
  Receive Date: 20240102
  Receipt Date: 20250116
  Transmission Date: 20250409
  Serious: Yes (Hospitalization, Other)
  Sender: CELLTRION
  Company Number: NL-CELLTRION INC.-2023NL024947

PATIENT

DRUGS (12)
  1. ADALIMUMAB [Suspect]
     Active Substance: ADALIMUMAB
     Indication: Crohn^s disease
     Route: 058
     Dates: start: 202308, end: 202310
  2. ADALIMUMAB [Suspect]
     Active Substance: ADALIMUMAB
     Indication: Stoma site oedema
  3. ADALIMUMAB [Suspect]
     Active Substance: ADALIMUMAB
     Indication: Crohn^s disease
  4. USTEKINUMAB [Suspect]
     Active Substance: USTEKINUMAB
     Indication: Crohn^s disease
     Dosage: EVERY 4 WEEKS
     Route: 065
     Dates: start: 2021
  5. USTEKINUMAB [Suspect]
     Active Substance: USTEKINUMAB
     Indication: Stoma site oedema
  6. USTEKINUMAB [Suspect]
     Active Substance: USTEKINUMAB
     Indication: Crohn^s disease
  7. METHOTREXATE [Suspect]
     Active Substance: METHOTREXATE
     Indication: Crohn^s disease
     Route: 065
     Dates: start: 202308, end: 202310
  8. METHOTREXATE [Suspect]
     Active Substance: METHOTREXATE
     Indication: Crohn^s disease
  9. METHOTREXATE [Suspect]
     Active Substance: METHOTREXATE
     Indication: Stoma site oedema
  10. VEDOLIZUMAB [Suspect]
     Active Substance: VEDOLIZUMAB
     Indication: Crohn^s disease
     Route: 065
     Dates: start: 2021, end: 202308
  11. PREDNISOLONE [Suspect]
     Active Substance: PREDNISOLONE
     Indication: Crohn^s disease
     Route: 065
     Dates: start: 2019
  12. PREDNISOLONE [Suspect]
     Active Substance: PREDNISOLONE
     Indication: Crohn^s disease

REACTIONS (7)
  - Crohn^s disease [Recovering/Resolving]
  - Stoma site oedema [Recovering/Resolving]
  - Arteriosclerosis coronary artery [Unknown]
  - Unevaluable event [Unknown]
  - Enteral nutrition [Unknown]
  - Depression [Not Recovered/Not Resolved]
  - Intentional product use issue [Unknown]

NARRATIVE: CASE EVENT DATE: 20230101
